FAERS Safety Report 24890637 (Version 2)
Quarter: 2025Q3

REPORT INFORMATION
  Report Type: Spontaneous
  Country: US (occurrence: US)
  Receive Date: 20250127
  Receipt Date: 20250714
  Transmission Date: 20251021
  Serious: Yes (Other)
  Sender: BRISTOL-MYERS SQUIBB COMPANY
  Company Number: US-BRISTOL-MYERS SQUIBB COMPANY-2025-009533

PATIENT
  Age: 81 Year
  Sex: Male
  Weight: 65.77 kg

DRUGS (1)
  1. REVLIMID [Suspect]
     Active Substance: LENALIDOMIDE
     Indication: Plasma cell myeloma
     Route: 048
     Dates: start: 202206

REACTIONS (5)
  - Macular degeneration [Unknown]
  - Cataract [Unknown]
  - Vision blurred [Unknown]
  - Vitreous floaters [Unknown]
  - Constipation [Unknown]

NARRATIVE: CASE EVENT DATE: 20250101
